FAERS Safety Report 8536788-8 (Version None)
Quarter: 2012Q3

REPORT INFORMATION
  Report Type: 
  Country: None (occurrence: None)
  Receive Date: 20120718
  Receipt Date: 20120718
  Transmission Date: 20120928
  Serious: Yes (Hospitalization)
  Sender: FDA-Public Use
  Company Number: None

PATIENT
  Sex: Female
  Weight: 60 kg

DRUGS (4)
  1. PACLITAXEL [Suspect]
     Dosage: 810.25 MG
  2. INSULINE [Concomitant]
  3. CISPLATIN [Suspect]
     Dosage: 231.5 MG
  4. PAROXETINE HCL [Concomitant]

REACTIONS (2)
  - NEUTROPENIA [None]
  - URINARY TRACT INFECTION [None]
